FAERS Safety Report 25331350 (Version 1)
Quarter: 2025Q2

REPORT INFORMATION
  Report Type: Spontaneous
  Country: US (occurrence: US)
  Receive Date: 20250519
  Receipt Date: 20250519
  Transmission Date: 20250717
  Serious: Yes (Other)
  Sender: BAYER HEALTHCARE LLC
  Company Number: US-BAYER-2025A065372

PATIENT

DRUGS (1)
  1. ALKA-SELTZER COOL ACTION EXTRA STRENGTH RELIEFCHEWS MINT [Suspect]
     Active Substance: CALCIUM CARBONATE
     Indication: Gastrointestinal disorder
     Route: 048

REACTIONS (2)
  - Foreign body in throat [Unknown]
  - Expired product administered [None]
